FAERS Safety Report 6551849-0 (Version None)
Quarter: 2010Q1

REPORT INFORMATION
  Report Type: 
  Country: None (occurrence: None)
  Receive Date: 20100126
  Receipt Date: 20100121
  Transmission Date: 20100710
  Serious: Yes (Other)
  Sender: FDA-Public Use
  Company Number: US-PFIZER INC-2010009625

PATIENT
  Sex: Male
  Weight: 108.86 kg

DRUGS (4)
  1. VIAGRA [Suspect]
     Indication: ERECTILE DYSFUNCTION
     Dosage: 100 MG, AS NEEDED
     Route: 048
     Dates: start: 20000101
  2. ALLOPURINOL [Concomitant]
     Indication: BLOOD URIC ACID
     Dosage: UNK
  3. TAMSULOSIN [Concomitant]
     Indication: PROSTATIC DISORDER
     Dosage: UNK
  4. TAMSULOSIN [Concomitant]
     Indication: BLADDER DISORDER

REACTIONS (4)
  - DRUG INEFFECTIVE [None]
  - JOINT INJURY [None]
  - NASAL CONGESTION [None]
  - NECK INJURY [None]
